FAERS Safety Report 11465243 (Version 1)
Quarter: 2015Q3

REPORT INFORMATION
  Report Type: Report from Study
  Country: DE (occurrence: DE)
  Receive Date: 20150907
  Receipt Date: 20150907
  Transmission Date: 20151125
  Serious: Yes (Death)
  Sender: FDA-Public Use
  Company Number: DE-BEH-2015053663

PATIENT
  Age: 55 Year
  Sex: Male
  Weight: 92 kg

DRUGS (54)
  1. PRIVIGEN [Suspect]
     Active Substance: HUMAN IMMUNOGLOBULIN G
     Dosage: INFUSION RATE: MIN. 0.25 ML/MIN, MAX. 1.33 ML/MIN
     Dates: start: 20130919, end: 20130919
  2. PREDNISOLON [Concomitant]
     Active Substance: PREDNISOLONE
     Dates: start: 20130620, end: 20130620
  3. FENISTIL [Concomitant]
     Active Substance: DIMETHINDENE
     Dosage: 1 VIAL
     Dates: start: 20130620, end: 20130620
  4. CANCIDAS [Concomitant]
     Active Substance: CASPOFUNGIN ACETATE
     Dosage: ??-FEB-2014 - ??-FEB-2014
  5. PREDNISOLON [Concomitant]
     Active Substance: PREDNISOLONE
     Dates: start: 20130617, end: 20130617
  6. PREDNISOLON [Concomitant]
     Active Substance: PREDNISOLONE
     Dates: start: 20130801, end: 20130801
  7. PREDNISOLON [Concomitant]
     Active Substance: PREDNISOLONE
     Indication: PREMEDICATION
     Dates: start: 20140225, end: 20140225
  8. CYCLOPHOSPHAMID [Concomitant]
     Active Substance: CYCLOPHOSPHAMIDE
     Indication: CHEMOTHERAPY
     Dates: start: 20131219
  9. AMPHO MORONAL [Concomitant]
     Dates: start: 20131227
  10. FOLSAN [Concomitant]
     Active Substance: FOLIC ACID
     Dates: start: 20131227
  11. PRIVIGEN [Suspect]
     Active Substance: HUMAN IMMUNOGLOBULIN G
     Dosage: INFUSION RATE: MIN. 0.25 ML/MIN, MAX. 1.33 ML/MIN
     Dates: start: 20131107, end: 20131107
  12. PREDNISOLON [Concomitant]
     Active Substance: PREDNISOLONE
     Dates: start: 20131017, end: 20131017
  13. FENISTIL [Concomitant]
     Active Substance: DIMETHINDENE
     Dosage: 1 VIAL
     Dates: start: 20130617, end: 20130617
  14. FENISTIL [Concomitant]
     Active Substance: DIMETHINDENE
     Dosage: 1 VIAL
     Dates: start: 20130801, end: 20130801
  15. FENISTIL [Concomitant]
     Active Substance: DIMETHINDENE
     Dosage: 1 VIAL
     Dates: start: 20130909, end: 20130909
  16. FENISTIL [Concomitant]
     Active Substance: DIMETHINDENE
     Dosage: 1 VIAL
     Dates: start: 20131107, end: 20131107
  17. BENDAMUSTIN [Concomitant]
     Active Substance: BENDAMUSTINE
     Indication: CHEMOTHERAPY
     Dosage: SINGLE DOSE DURING HOSPITAL STAY
     Dates: start: 20131128
  18. NEULASTA [Concomitant]
     Active Substance: PEGFILGRASTIM
     Dates: start: 20140107, end: 20140228
  19. DIFLUCAN [Concomitant]
     Active Substance: FLUCONAZOLE
     Dates: start: 20140103
  20. PRIVIGEN [Suspect]
     Active Substance: HUMAN IMMUNOGLOBULIN G
     Dosage: INFUSION RATE: MIN. 0.25 ML/MIN, MAX. 1.33 ML/MIN
     Dates: start: 20130711, end: 20130711
  21. PRIVIGEN [Suspect]
     Active Substance: HUMAN IMMUNOGLOBULIN G
     Dosage: INFUSION RATE: MIN. 0.25 ML/MIN, MAX. 1.33 ML/MIN
     Dates: start: 20130822, end: 20130822
  22. RITUXIMAB [Concomitant]
     Active Substance: RITUXIMAB
     Indication: AUTOIMMUNE HAEMOLYTIC ANAEMIA
     Dates: start: 20131218
  23. PREDNISOLON [Concomitant]
     Active Substance: PREDNISOLONE
     Dates: start: 20131128
  24. FENISTIL [Concomitant]
     Active Substance: DIMETHINDENE
     Dosage: 1 VIAL
     Dates: start: 20130711, end: 20130711
  25. FENISTIL [Concomitant]
     Active Substance: DIMETHINDENE
     Indication: PREMEDICATION
     Dosage: 1 VIAL
     Dates: start: 20140225, end: 20140225
  26. ANTIBIOTICS [Concomitant]
     Active Substance: UNSPECIFIED INGREDIENT
     Indication: RESPIRATORY TRACT INFECTION
     Dosage: ??-???-2013 (JUN OR JUL)
  27. PREDNISOLON [Concomitant]
     Active Substance: PREDNISOLONE
     Indication: HAEMOLYSIS
     Dosage: ??-MAR-2013 TO 08-MAR-2014 IN VARIOUS DOSAGES
  28. ALLOPURINOL 300 [Concomitant]
     Active Substance: ALLOPURINOL
     Dosage: ??-NOV-2013 - 08-MAR-2014
  29. COTRIM D.S. [Concomitant]
     Active Substance: SULFAMETHOXAZOLE\TRIMETHOPRIM
     Dates: start: 20131227
  30. RED CELL CONCENTRATE [Concomitant]
  31. VITAMIN B12 [Concomitant]
     Active Substance: CYANOCOBALAMIN
     Dosage: 23-JAN-2014 - ??-???-2014
  32. CEFTAZIDIM [Concomitant]
     Active Substance: CEFTAZIDIME
     Dosage: ??-FEB-2014 - ??-FEB-2014
  33. PREDNISOLON [Concomitant]
     Active Substance: PREDNISOLONE
     Dates: start: 20130711, end: 20130711
  34. PREDNISOLON [Concomitant]
     Active Substance: PREDNISOLONE
     Dates: start: 20131107, end: 20131107
  35. FENISTIL [Concomitant]
     Active Substance: DIMETHINDENE
     Dosage: 1 VIAL
     Dates: start: 20130822, end: 20130822
  36. PANTOZOL [Concomitant]
     Active Substance: PANTOPRAZOLE SODIUM
     Dosage: ??-MAR-2013 - 08-MAR-2014
  37. PRIVIGEN [Suspect]
     Active Substance: HUMAN IMMUNOGLOBULIN G
     Dosage: INFUSION RATE: MIN. 0.25 ML/MIN, MAX. 1.33 ML/MIN
     Dates: start: 20130620, end: 20130620
  38. PREDNISOLON [Concomitant]
     Active Substance: PREDNISOLONE
     Dates: start: 20130822, end: 20130822
  39. DOXORUBICIN [Concomitant]
     Active Substance: DOXORUBICIN
     Indication: CHEMOTHERAPY
     Dates: start: 20131219
  40. ANTITHROMBOTIC AGENTS [Concomitant]
     Active Substance: UNSPECIFIED INGREDIENT
     Dates: start: 20130711, end: 20140308
  41. KALINOR [Concomitant]
     Active Substance: POTASSIUM CITRATE
     Dates: start: 20131227
  42. MEROPENEM. [Concomitant]
     Active Substance: MEROPENEM
     Dosage: ??-FEB-2014 - ??-FEB-2014
  43. PRIVIGEN [Suspect]
     Active Substance: HUMAN IMMUNOGLOBULIN G
     Dosage: INFUSION RATE: MIN. 0.25 ML/MIN, MAX. 1.33 ML/MIN
     Dates: start: 20131017, end: 20131017
  44. PRIVIGEN [Suspect]
     Active Substance: HUMAN IMMUNOGLOBULIN G
     Dosage: INFUSION RATE: MIN. 0.25 ML/MIN, MAX. 1.33 ML/MIN
     Dates: start: 20140225, end: 20140225
  45. PREDNISOLON [Concomitant]
     Active Substance: PREDNISOLONE
     Dates: start: 20130919, end: 20130919
  46. INNOHEP [Concomitant]
     Active Substance: TINZAPARIN SODIUM
     Dosage: ??-JUL-2012 - ??-JUL-2013
  47. PRIVIGEN [Suspect]
     Active Substance: HUMAN IMMUNOGLOBULIN G
     Indication: CHRONIC LYMPHOCYTIC LEUKAEMIA
     Dosage: INFUSION RATE: MIN. 0.25 ML/MIN, MAX. 1.33 ML/MIN
     Dates: start: 20130617, end: 20130617
  48. PRIVIGEN [Suspect]
     Active Substance: HUMAN IMMUNOGLOBULIN G
     Dosage: INFUSION RATE: MIN. 0.25 ML/MIN, MAX. 1.33 ML/MIN
     Dates: start: 20130801, end: 20130801
  49. FENISTIL [Concomitant]
     Active Substance: DIMETHINDENE
     Dosage: 1 VIAL
     Dates: start: 20131017, end: 20131017
  50. VINCRISTIN [Concomitant]
     Active Substance: VINCRISTINE
     Indication: CHEMOTHERAPY
     Dates: start: 20131219
  51. NEUPOGEN [Concomitant]
     Active Substance: FILGRASTIM
     Dosage: INTERMITTENTLY
     Dates: start: 20130617, end: 20140203
  52. CIPROFLOXACIN. [Concomitant]
     Active Substance: CIPROFLOXACIN
     Dates: start: 20130617, end: 20130621
  53. CIPROFLOXACIN. [Concomitant]
     Active Substance: CIPROFLOXACIN
     Dates: start: 20131227, end: 20131231
  54. CIPROFLOXACIN. [Concomitant]
     Active Substance: CIPROFLOXACIN
     Dosage: INTERMITTENTLY
     Dates: start: 20140110, end: 20140308

REACTIONS (4)
  - Oral herpes [Recovered/Resolved]
  - Chronic lymphocytic leukaemia [Fatal]
  - Gastroenteritis [Recovered/Resolved]
  - Sepsis [Recovered/Resolved]

NARRATIVE: CASE EVENT DATE: 201312
